FAERS Safety Report 19065962 (Version 3)
Quarter: 2023Q2

REPORT INFORMATION
  Report Type: Report from Study
  Country: AR (occurrence: AR)
  Receive Date: 20210327
  Receipt Date: 20230517
  Transmission Date: 20230721
  Serious: Yes (Life-Threatening, Other)
  Sender: FDA-Public Use
  Company Number: AR-NOVARTISPH-PHHY2018AR161366

PATIENT
  Age: 58 Year
  Sex: Female

DRUGS (2)
  1. COSENTYX [Suspect]
     Active Substance: SECUKINUMAB
     Indication: Ankylosing spondylitis
     Dosage: 150 MG, QMO
     Route: 058
     Dates: start: 20180917
  2. COSENTYX [Suspect]
     Active Substance: SECUKINUMAB
     Indication: Axial spondyloarthritis

REACTIONS (21)
  - Ankylosing spondylitis [Recovering/Resolving]
  - Spinal pain [Unknown]
  - Pain [Not Recovered/Not Resolved]
  - Deafness unilateral [Unknown]
  - Arthralgia [Recovered/Resolved]
  - Arthritis [Recovered/Resolved]
  - Hypoaesthesia [Unknown]
  - Dysphonia [Recovered/Resolved]
  - Osteitis [Unknown]
  - Chest pain [Unknown]
  - Inflammation [Unknown]
  - Arthralgia [Unknown]
  - Arthritis [Unknown]
  - Rheumatic disorder [Not Recovered/Not Resolved]
  - Osteoarthritis [Not Recovered/Not Resolved]
  - Fibromyalgia [Not Recovered/Not Resolved]
  - Pain in extremity [Unknown]
  - Myalgia [Unknown]
  - Restlessness [Unknown]
  - Product dose omission issue [Unknown]
  - Drug ineffective [Unknown]

NARRATIVE: CASE EVENT DATE: 20200101
